FAERS Safety Report 18485630 (Version 1)
Quarter: 2020Q4

REPORT INFORMATION
  Report Type: Spontaneous
  Country: US (occurrence: US)
  Receive Date: 20201110
  Receipt Date: 20201110
  Transmission Date: 20210114
  Serious: Yes (Death)
  Sender: FDA-Public Use
  Company Number: None

PATIENT
  Age: 46 Year
  Sex: Female

DRUGS (19)
  1. MULTI-VIITE TAB [Concomitant]
  2. NORETH/ETHIN TAB 1/20 [Concomitant]
  3. BUDESONIDE CAP 3MG DR [Concomitant]
  4. NEURONTIN CAP 300MG [Concomitant]
  5. CELECOXIB CAP 100MG [Concomitant]
  6. GEMFIBROZIL TAB 600MG [Concomitant]
  7. METOPROLOL SUC 5OMG ER [Concomitant]
  8. TIMOLOL MAL SOL 0.5% [Concomitant]
  9. DICYCLOMINE CAP 10MG [Concomitant]
  10. VITAMIN D TAB 1000 UNIT [Concomitant]
  11. TYLENOL TAB 500MG [Concomitant]
  12. DALFAMPRIDINE ER [Suspect]
     Active Substance: DALFAMPRIDINE
     Indication: MULTIPLE SCLEROSIS
     Route: 048
     Dates: start: 20181127
  13. MICROGESTIN TAB FE 1/20 [Concomitant]
  14. OFLOXACIN DROP 0.3% [Concomitant]
  15. OXYBUTYNIN TAB 15MG ER [Concomitant]
  16. GABAPENTIN CAP 300MG [Concomitant]
     Active Substance: GABAPENTIN
  17. AMPHET/DEXT TAB 10MG [Concomitant]
  18. JUNEL FE TAB 1/20 [Concomitant]
  19. LEVOTHYROXINE 75MG [Concomitant]
     Active Substance: LEVOTHYROXINE

REACTIONS (1)
  - Death [None]

NARRATIVE: CASE EVENT DATE: 20201101
